FAERS Safety Report 5255780-2 (Version None)
Quarter: 2007Q1

REPORT INFORMATION
  Report Type: 
  Country: None (occurrence: None)
  Receive Date: 20070228
  Receipt Date: 20070212
  Transmission Date: 20070707
  Serious: Yes (Other)
  Sender: FDA-Public Use
  Company Number: 2007BI003611

PATIENT
  Age: 65 Year
  Sex: Male

DRUGS (3)
  1. ZEVALIN [Suspect]
     Indication: B-CELL LYMPHOMA
     Dosage: ; 1X;
     Dates: start: 20050101, end: 20050101
  2. RITUXIMAB [Concomitant]
  3. RITUXIMAB [Concomitant]

REACTIONS (4)
  - DISEASE PROGRESSION [None]
  - DRUG INEFFECTIVE [None]
  - PAIN [None]
  - SUBCUTANEOUS NODULE [None]
